FAERS Safety Report 9168411 (Version 3)
Quarter: 2013Q2

REPORT INFORMATION
  Report Type: Spontaneous
  Country: BE (occurrence: BE)
  Receive Date: 20130318
  Receipt Date: 20130503
  Transmission Date: 20140414
  Serious: Yes (Other)
  Sender: FDA-Public Use
  Company Number: BE-ASTRAZENECA-2013SE16517

PATIENT
  Age: 69 Year
  Sex: Male
  Weight: 88 kg

DRUGS (6)
  1. VIMOVO [Suspect]
     Indication: PAIN
     Dosage: TWO TIMES A DAY
     Route: 048
     Dates: start: 20120920, end: 20130301
  2. VIMOVO [Suspect]
     Indication: PAIN
     Route: 048
     Dates: start: 20130325
  3. INEGY [Concomitant]
     Indication: BLOOD CHOLESTEROL ABNORMAL
     Dosage: 10/20, 10 MG DAILY
     Route: 048
  4. ZALDIAR [Concomitant]
     Dosage: TWO TIMES A DAY
  5. SERETIDE [Concomitant]
     Dosage: TWO TIMES A DAY
  6. ASAFLOW [Concomitant]

REACTIONS (1)
  - Transient ischaemic attack [Recovering/Resolving]
